FAERS Safety Report 4525357-2 (Version None)
Quarter: 2004Q4

REPORT INFORMATION
  Report Type: 
  Country: None (occurrence: None)
  Receive Date: 20041117
  Receipt Date: 20040430
  Transmission Date: 20050328
  Serious: Yes (Other)
  Sender: FDA-Public Use
  Company Number: 2004S1001282

PATIENT
  Age: 41 Year
  Sex: Male

DRUGS (4)
  1. CLOZAPINE [Suspect]
     Indication: SCHIZOPHRENIA
     Dosage: 500 MG, QD, ORAL
     Route: 048
     Dates: end: 20040330
  2. CLOZAPINE [Suspect]
     Indication: SCHIZOPHRENIA
     Dosage: 500 MG, QD, ORAL
     Route: 048
     Dates: start: 20040427
  3. CIMETIDINE [Concomitant]
  4. DIVALPROEX SODIUM [Concomitant]

REACTIONS (1)
  - THROMBOCYTOPENIA [None]
